FAERS Safety Report 15379131 (Version 1)
Quarter: 2018Q3

REPORT INFORMATION
  Report Type: Spontaneous
  Country: US (occurrence: US)
  Receive Date: 20180906
  Receipt Date: 20180906
  Transmission Date: 20181010
  Serious: Yes (Hospitalization)
  Sender: FDA-Public Use
  Company Number: None

PATIENT
  Age: 45 Year
  Sex: Female
  Weight: 96.5 kg

DRUGS (4)
  1. CYCLOPHOSPHAMIDE. [Suspect]
     Active Substance: CYCLOPHOSPHAMIDE
     Dates: end: 20180510
  2. DOXORUBICIN HYDROCHLORIDE. [Concomitant]
     Active Substance: DOXORUBICIN HYDROCHLORIDE
     Dates: end: 20180510
  3. CARBOPLATIN. [Suspect]
     Active Substance: CARBOPLATIN
     Dates: end: 20180802
  4. TAXOL [Suspect]
     Active Substance: PACLITAXEL
     Dates: end: 20180816

REACTIONS (7)
  - Abdominal pain [None]
  - Cholelithiasis [None]
  - Dyspnoea [None]
  - Fatigue [None]
  - Murphy^s sign positive [None]
  - Pain [None]
  - Decreased appetite [None]

NARRATIVE: CASE EVENT DATE: 20180902
